FAERS Safety Report 8025382-3 (Version None)
Quarter: 2012Q1

REPORT INFORMATION
  Report Type: 
  Country: None (occurrence: None)
  Receive Date: 20120105
  Receipt Date: 20120104
  Transmission Date: 20120608
  Serious: Yes (Death)
  Sender: FDA-Public Use
  Company Number: US-PFIZER INC-2012002204

PATIENT
  Sex: Female

DRUGS (3)
  1. NORVASC [Suspect]
  2. LIPITOR [Suspect]
  3. ZOLOFT [Suspect]

REACTIONS (1)
  - DEATH [None]
